FAERS Safety Report 23251986 (Version 1)
Quarter: 2023Q4

REPORT INFORMATION
  Report Type: Spontaneous
  Country: US (occurrence: US)
  Receive Date: 20231201
  Receipt Date: 20231201
  Transmission Date: 20240110
  Serious: No
  Sender: FDA-Public Use
  Company Number: US-SA-2023SA366169

PATIENT
  Age: 31 Year
  Sex: Male

DRUGS (6)
  1. ELOCTATE [Suspect]
     Active Substance: EFMOROCTOCOG ALFA
     Indication: Factor VIII deficiency
     Dosage: 5600 UNITS (5040-6160), Q4D
     Route: 041
     Dates: start: 201903
  2. ELOCTATE [Suspect]
     Active Substance: EFMOROCTOCOG ALFA
     Indication: Factor VIII deficiency
     Dosage: 5600 UNITS (5040-6160), Q4D
     Route: 041
     Dates: start: 201903
  3. ELOCTATE [Suspect]
     Active Substance: EFMOROCTOCOG ALFA
     Indication: Haemarthrosis
     Dosage: 2800 UNITS (2520-3080), AS NEEDED EVERY 1-2 DAYS FOR ACUTE JOINT BLEED
     Route: 041
  4. ELOCTATE [Suspect]
     Active Substance: EFMOROCTOCOG ALFA
     Indication: Haemarthrosis
     Dosage: 2800 UNITS (2520-3080), AS NEEDED EVERY 1-2 DAYS FOR ACUTE JOINT BLEED
     Route: 041
  5. ELOCTATE [Suspect]
     Active Substance: EFMOROCTOCOG ALFA
     Dosage: 5000 UNITS (4500-5500) DAILY FOR 2 DAYS THEN EVERY OTHER DAY FOR 2 DAYS
     Route: 041
  6. ELOCTATE [Suspect]
     Active Substance: EFMOROCTOCOG ALFA
     Dosage: 5000 UNITS (4500-5500) DAILY FOR 2 DAYS THEN EVERY OTHER DAY FOR 2 DAYS
     Route: 041

REACTIONS (1)
  - Haemorrhage [Not Recovered/Not Resolved]

NARRATIVE: CASE EVENT DATE: 20231113
